FAERS Safety Report 17544165 (Version 1)
Quarter: 2020Q1

REPORT INFORMATION
  Report Type: Spontaneous
  Country: US (occurrence: US)
  Receive Date: 20200306
  Receipt Date: 20200306
  Transmission Date: 20200409
  Serious: Yes (Hospitalization)
  Sender: FDA-Public Use
  Company Number: None

PATIENT
  Age: 61 Year
  Sex: Male

DRUGS (1)
  1. METHADONE (METHADONE HCL 0.58MG/ML SOLN, ORAL) [Suspect]
     Active Substance: METHADONE HYDROCHLORIDE
     Dates: start: 20191120

REACTIONS (4)
  - Accidental overdose [None]
  - Device dispensing error [None]
  - Respiratory failure [None]
  - Syringe issue [None]

NARRATIVE: CASE EVENT DATE: 20191120
